FAERS Safety Report 6428525-8 (Version None)
Quarter: 2009Q4

REPORT INFORMATION
  Report Type: 
  Country: None (occurrence: None)
  Receive Date: 20091102
  Receipt Date: 20091021
  Transmission Date: 20100525
  Serious: Yes (Other)
  Sender: FDA-Public Use
  Company Number: 2008EU000016

PATIENT
  Age: 63 Year
  Sex: Female
  Weight: 63 kg

DRUGS (6)
  1. PROGRAF [Suspect]
     Indication: RENAL TRANSPLANT
     Dosage: 10 MG, UID/QD, ORAL ; 5 MG, UID/QD, ORAL
     Route: 048
     Dates: end: 20071219
  2. PROGRAF [Suspect]
     Indication: RENAL TRANSPLANT
     Dosage: 10 MG, UID/QD, ORAL ; 5 MG, UID/QD, ORAL
     Route: 048
     Dates: end: 20071220
  3. CELLCEPT [Concomitant]
  4. URBASONE (METHYLPREDNISOLONE) [Concomitant]
  5. PRAVASTATIN [Concomitant]
  6. ROCALTROL [Concomitant]

REACTIONS (8)
  - ACCIDENTAL OVERDOSE [None]
  - ALANINE AMINOTRANSFERASE INCREASED [None]
  - ASPARTATE AMINOTRANSFERASE INCREASED [None]
  - BLOOD CREATININE INCREASED [None]
  - DIZZINESS [None]
  - ENTERITIS [None]
  - HYPOTENSION [None]
  - THERAPEUTIC AGENT TOXICITY [None]
